FAERS Safety Report 5506165-2 (Version None)
Quarter: 2007Q4

REPORT INFORMATION
  Report Type: 
  Country: None (occurrence: None)
  Receive Date: 20071105
  Receipt Date: 20071026
  Transmission Date: 20080405
  Serious: Yes (Other)
  Sender: FDA-Public Use
  Company Number: PHEH2007US10491

PATIENT
  Sex: Female

DRUGS (2)
  1. LOTREL [Suspect]
     Dosage: 5/10 MG QD (AM)
     Route: 048
  2. METOPROLOL [Suspect]
     Dosage: ONE, QD (PM)
     Route: 048

REACTIONS (2)
  - ANXIETY [None]
  - HEART RATE IRREGULAR [None]
